FAERS Safety Report 12308253 (Version 7)
Quarter: 2017Q2

REPORT INFORMATION
  Report Type: Spontaneous
  Country: US (occurrence: US)
  Receive Date: 20160426
  Receipt Date: 20170619
  Transmission Date: 20170830
  Serious: No
  Sender: FDA-Public Use
  Company Number: US-ASTRAZENECA-2016SE32808

PATIENT
  Age: 20794 Day
  Sex: Female
  Weight: 136.1 kg

DRUGS (10)
  1. LISINOPRIL. [Suspect]
     Active Substance: LISINOPRIL
     Dosage: 10.0MG UNKNOWN
     Route: 048
  2. TUDORZA PRESSAIR [Suspect]
     Active Substance: ACLIDINIUM BROMIDE
     Indication: CHRONIC OBSTRUCTIVE PULMONARY DISEASE
     Route: 055
     Dates: start: 201409
  3. LISINOPRIL. [Suspect]
     Active Substance: LISINOPRIL
     Dosage: 5.0MG UNKNOWN
     Route: 048
  4. LYRICA [Concomitant]
     Active Substance: PREGABALIN
  5. LISINOPRIL. [Suspect]
     Active Substance: LISINOPRIL
     Dosage: 20.0MG UNKNOWN
     Route: 048
  6. TUDORZA PRESSAIR [Suspect]
     Active Substance: ACLIDINIUM BROMIDE
     Indication: CHRONIC OBSTRUCTIVE PULMONARY DISEASE
     Dosage: 1 PUFF IN THE MORNING AND 1 PUFF IN THE EVENING
     Route: 055
     Dates: start: 20160313, end: 20170427
  7. TRAZODONE [Concomitant]
     Active Substance: TRAZODONE HYDROCHLORIDE
  8. NAPROXEN. [Concomitant]
     Active Substance: NAPROXEN
  9. NORCO [Concomitant]
     Active Substance: ACETAMINOPHEN\HYDROCODONE BITARTRATE
  10. ALBUTEROL. [Concomitant]
     Active Substance: ALBUTEROL
     Dates: end: 201702

REACTIONS (14)
  - Fatigue [Unknown]
  - Drug dose omission [Recovered/Resolved]
  - Increased bronchial secretion [Unknown]
  - Visual impairment [Unknown]
  - Weight decreased [Unknown]
  - Product taste abnormal [Unknown]
  - Dyspnoea [Unknown]
  - Secretion discharge [Unknown]
  - Dysphonia [Unknown]
  - Incorrect dose administered [Unknown]
  - Device issue [Unknown]
  - Hypertension [Unknown]
  - Orthopnoea [Unknown]
  - Gait disturbance [Unknown]

NARRATIVE: CASE EVENT DATE: 20160318
